FAERS Safety Report 6520274-0 (Version None)
Quarter: 2009Q4

REPORT INFORMATION
  Report Type: 
  Country: None (occurrence: None)
  Receive Date: 20091229
  Receipt Date: 20091214
  Transmission Date: 20100525
  Serious: Yes (Other)
  Sender: FDA-Public Use
  Company Number: BR-PFIZER INC-2009309409

PATIENT
  Sex: Female
  Weight: 60 kg

DRUGS (5)
  1. XALATAN [Suspect]
     Indication: GLAUCOMA
     Dosage: UNK
     Route: 047
  2. LOSARTAN [Concomitant]
     Dosage: UNK
  3. ESTRADIOL [Concomitant]
     Dosage: UNK
  4. ENALAPRIL [Concomitant]
     Dosage: UNK
  5. LINSEED OIL [Concomitant]
     Dosage: UNK

REACTIONS (3)
  - DRY THROAT [None]
  - DYSPHONIA [None]
  - LARYNGITIS ALLERGIC [None]
